FAERS Safety Report 7773469-2 (Version None)
Quarter: 2011Q3

REPORT INFORMATION
  Report Type: 
  Country: None (occurrence: None)
  Receive Date: 20110922
  Receipt Date: 20110907
  Transmission Date: 20111222
  Serious: No
  Sender: FDA-Public Use
  Company Number: SE-ELI_LILLY_AND_COMPANY-SE201109006408

PATIENT
  Sex: Female

DRUGS (2)
  1. DULOXETIME HYDROCHLORIDE [Suspect]
     Dosage: 120 MG, QD
  2. DULOXETIME HYDROCHLORIDE [Suspect]
     Dosage: 90 MG, QD

REACTIONS (1)
  - HEPATIC ENZYME INCREASED [None]
